FAERS Safety Report 7765954-4 (Version None)
Quarter: 2011Q3

REPORT INFORMATION
  Report Type: 
  Country: None (occurrence: None)
  Receive Date: 20110921
  Receipt Date: 20110915
  Transmission Date: 20111222
  Serious: Yes (Other)
  Sender: FDA-Public Use
  Company Number: US-AMGEN-USASP2011047834

PATIENT
  Age: 54 Year
  Sex: Male
  Weight: 53 kg

DRUGS (11)
  1. PEGASYS [Concomitant]
     Dosage: 180 MUG, UNK
     Route: 058
  2. GABAPENTIN [Concomitant]
     Dosage: 800 MG, BID
     Route: 048
  3. INTELENCE [Concomitant]
     Dosage: 200 MG, BID
     Route: 048
  4. MULTIVITAMIN                       /00097801/ [Concomitant]
     Dosage: 1 DF, QD
     Route: 048
  5. PROCARDIA XL [Concomitant]
     Dosage: 30 MG, QD
     Route: 048
  6. PROCRIT                            /00928302/ [Concomitant]
     Dosage: 60000 IU, QWK
     Route: 058
  7. TRUVADA [Concomitant]
  8. ISENTRESS [Concomitant]
     Dosage: 1 DF, BID
  9. NPLATE [Suspect]
     Indication: IDIOPATHIC THROMBOCYTOPENIC PURPURA
     Dosage: 10 MUG/KG, UNK
     Dates: start: 20100316, end: 20110712
  10. GLIPIZIDE [Concomitant]
     Route: 048
  11. NEUPOGEN [Concomitant]

REACTIONS (1)
  - THROMBOCYTOPENIA [None]
